FAERS Safety Report 6691776-1 (Version None)
Quarter: 2010Q2

REPORT INFORMATION
  Report Type: 
  Country: None (occurrence: None)
  Receive Date: 20100422
  Receipt Date: 20090505
  Transmission Date: 20101027
  Serious: No
  Sender: FDA-Public Use
  Company Number: US-ASTRAZENECA-2009UW06839

PATIENT
  Age: 58 Year
  Sex: Male

DRUGS (5)
  1. TOPROL-XL [Suspect]
     Indication: HYPERTENSION
     Route: 048
  2. TOPROL-XL [Suspect]
     Route: 048
  3. TOPROL-XL [Suspect]
     Route: 048
  4. XANAX [Concomitant]
     Indication: ANXIETY
  5. BUSPAR [Concomitant]

REACTIONS (10)
  - ALOPECIA [None]
  - BRONCHOSPASM [None]
  - FATIGUE [None]
  - INSOMNIA [None]
  - NASAL CONGESTION [None]
  - NERVOUSNESS [None]
  - PERIPHERAL COLDNESS [None]
  - SWELLING FACE [None]
  - URINARY TRACT DISORDER [None]
  - VISION BLURRED [None]
